FAERS Safety Report 24872917 (Version 1)
Quarter: 2025Q1

REPORT INFORMATION
  Report Type: Spontaneous
  Country: IT (occurrence: IT)
  Receive Date: 20250122
  Receipt Date: 20250122
  Transmission Date: 20250408
  Serious: Yes (Hospitalization, Other)
  Sender: CELLTRION
  Company Number: IT-ALFASIGMA-2024-AER-03846

PATIENT

DRUGS (10)
  1. TRASTUZUMAB [Suspect]
     Active Substance: TRASTUZUMAB
     Indication: HER2 positive colorectal cancer
     Route: 042
     Dates: start: 20240523, end: 20240523
  2. LEVOLEUCOVORIN CALCIUM PENTAHYDRATE [Suspect]
     Active Substance: LEVOLEUCOVORIN CALCIUM PENTAHYDRATE
     Indication: HER2 positive colorectal cancer
     Route: 042
     Dates: start: 20240523, end: 20240618
  3. TUCATINIB [Suspect]
     Active Substance: TUCATINIB
     Indication: HER2 positive colorectal cancer
     Route: 048
     Dates: start: 20240523, end: 20240623
  4. FLUOROURACIL [Suspect]
     Active Substance: FLUOROURACIL
     Indication: HER2 positive colorectal cancer
     Dosage: 2400 MG/M2 EVERY 2 WEEK (2400 MG/M2 (IV OVER 46-48 HOURS) EVERY 2 WEEKS ON DAYS 1, 15 AND 29 OF EACH
     Route: 042
     Dates: end: 20240618
  5. FLUOROURACIL [Suspect]
     Active Substance: FLUOROURACIL
     Route: 042
     Dates: start: 20240523
  6. LOPERAMIDE [Suspect]
     Active Substance: LOPERAMIDE
     Indication: HER2 positive colorectal cancer
     Route: 065
     Dates: end: 20240623
  7. LOPERAMIDE [Suspect]
     Active Substance: LOPERAMIDE
     Route: 065
     Dates: start: 20240523
  8. OXALIPLATIN [Suspect]
     Active Substance: OXALIPLATIN
     Indication: HER2 positive colorectal cancer
     Dosage: 85 MG/M2 EVERY 2 WEEK (85 MG/M2, EVERY 2 WEEKS ON DAYS 1, 15 AND 29 OF EACH 6-WEEK (42-DAY) CYCLE)
     Route: 042
     Dates: start: 20240523, end: 20240618
  9. METFORMIN [Concomitant]
     Active Substance: METFORMIN HYDROCHLORIDE
     Indication: Product used for unknown indication
     Dates: start: 2014, end: 20240624
  10. EMPAGLIFLOZIN [Concomitant]
     Active Substance: EMPAGLIFLOZIN
     Indication: Product used for unknown indication
     Dates: start: 2014, end: 20240624

REACTIONS (3)
  - Blood creatinine increased [Recovered/Resolved]
  - Nausea [Unknown]
  - Intentional product use issue [Unknown]

NARRATIVE: CASE EVENT DATE: 20240527
